FAERS Safety Report 9702002 (Version 2)
Quarter: 2013Q4

REPORT INFORMATION
  Report Type: Spontaneous
  Country: IL (occurrence: IL)
  Receive Date: 20131121
  Receipt Date: 20131206
  Transmission Date: 20140711
  Serious: Yes (Death, Hospitalization)
  Sender: FDA-Public Use
  Company Number: IL-ROCHE-1306607

PATIENT
  Age: 86 Year
  Sex: Male

DRUGS (6)
  1. XELODA [Suspect]
     Indication: COLON CANCER METASTATIC
     Route: 065
     Dates: start: 20131028
  2. AVASTIN [Suspect]
     Indication: COLON CANCER METASTATIC
     Route: 065
     Dates: start: 20131028
  3. ASPIRIN [Concomitant]
     Route: 065
  4. AVODART [Concomitant]
     Route: 065
  5. SIMVACOR [Concomitant]
     Route: 065
  6. LOSEC (ISRAEL) [Concomitant]
     Route: 065

REACTIONS (2)
  - Diarrhoea [Fatal]
  - Electrolyte imbalance [Fatal]
